FAERS Safety Report 24875907 (Version 1)
Quarter: 2025Q1

REPORT INFORMATION
  Report Type: Spontaneous
  Country: DE (occurrence: DE)
  Receive Date: 20250122
  Receipt Date: 20250122
  Transmission Date: 20250409
  Serious: Yes (Life-Threatening, Other)
  Sender: AMGEN
  Company Number: DE-AMGEN-DEUSP2025008307

PATIENT

DRUGS (5)
  1. TRASTUZUMAB [Suspect]
     Active Substance: TRASTUZUMAB
     Indication: Breast cancer
     Route: 065
  2. PERTUZUMAB [Concomitant]
     Active Substance: PERTUZUMAB
     Indication: Breast cancer
  3. PLATINUM [Concomitant]
     Active Substance: PLATINUM
     Indication: Breast cancer
  4. VINORELBINE [Concomitant]
     Active Substance: VINORELBINE TARTRATE
     Indication: Breast cancer
  5. CYCLOPHOSPHAMIDE [Concomitant]
     Active Substance: CYCLOPHOSPHAMIDE
     Indication: Breast cancer

REACTIONS (7)
  - Liver function test abnormal [Unknown]
  - Glomerular filtration rate abnormal [Unknown]
  - Electrolyte imbalance [Unknown]
  - Neuropathy peripheral [Unknown]
  - Thrombocytopenia [Unknown]
  - Neutropenia [Unknown]
  - Anaemia [Unknown]
